FAERS Safety Report 4705433-1 (Version None)
Quarter: 2005Q3

REPORT INFORMATION
  Report Type: 
  Country: None (occurrence: None)
  Receive Date: 20050701
  Receipt Date: 20050622
  Transmission Date: 20060218
  Serious: Yes (Other)
  Sender: FDA-Public Use
  Company Number: GB-GLAXOSMITHKLINE-B0385316A

PATIENT
  Age: 61 Year
  Sex: Male
  Weight: 84.4 kg

DRUGS (11)
  1. DIGOXIN [Suspect]
     Indication: ATRIAL FIBRILLATION
     Dosage: 250MCG PER DAY
     Route: 048
     Dates: start: 19960101, end: 20050526
  2. RAMIPRIL [Concomitant]
     Dosage: 10MG PER DAY
     Route: 065
  3. WARFARIN [Concomitant]
     Route: 065
     Dates: start: 19970606
  4. SALBUTAMOL [Concomitant]
     Dates: start: 20030408
  5. COMBIVENT [Concomitant]
     Dosage: 2.5ML PER DAY
     Dates: start: 20031107
  6. SALMETEROL [Concomitant]
     Dates: start: 20040115
  7. LACTULOSE [Concomitant]
     Dosage: 10ML PER DAY
     Route: 048
     Dates: start: 20041019
  8. THIAMINE [Concomitant]
     Dosage: 300MG PER DAY
     Route: 065
     Dates: start: 20041019
  9. FUROSEMIDE [Concomitant]
     Dosage: 40MG PER DAY
     Route: 065
  10. SPIRONOLACTONE [Concomitant]
     Dosage: 25MG PER DAY
     Route: 065
     Dates: start: 20041019
  11. FLIXOTIDE [Concomitant]
     Dates: start: 20041221

REACTIONS (4)
  - BLINDNESS [None]
  - DRUG LEVEL INCREASED [None]
  - VISION BLURRED [None]
  - VISUAL ACUITY REDUCED [None]
